FAERS Safety Report 20490719 (Version 2)
Quarter: 2022Q1

REPORT INFORMATION
  Report Type: Spontaneous
  Country: CN (occurrence: CN)
  Receive Date: 20220218
  Receipt Date: 20220218
  Transmission Date: 20220424
  Serious: Yes (Death, Hospitalization)
  Sender: FDA-Public Use
  Company Number: CN-JUBILANT CADISTA PHARMACEUTICALS-2022JUB00033

PATIENT
  Age: 72 Year
  Sex: Female

DRUGS (4)
  1. PREDNISONE [Suspect]
     Active Substance: PREDNISONE
     Indication: Behcet^s syndrome
     Dosage: 10 MG, 1X/DAY
     Route: 048
     Dates: start: 201612
  2. METHOTREXATE [Suspect]
     Active Substance: METHOTREXATE
     Indication: Behcet^s syndrome
     Dosage: 10 MG, 1X/WEEK
     Route: 048
     Dates: start: 201612
  3. THALIDOMIDE [Concomitant]
     Active Substance: THALIDOMIDE
     Indication: Behcet^s syndrome
     Dosage: 50 MG, 1X/DAY, NIGHTLY
     Route: 048
  4. AMLODIPINE [Concomitant]
     Active Substance: AMLODIPINE BESYLATE
     Indication: Hypertension
     Dosage: TOOK IRREGULARLY
     Route: 065

REACTIONS (3)
  - Sepsis [Fatal]
  - Localised infection [Recovering/Resolving]
  - Necrotising fasciitis [Recovering/Resolving]
